FAERS Safety Report 19924517 (Version 3)
Quarter: 2021Q4

REPORT INFORMATION
  Report Type: Spontaneous
  Country: PL (occurrence: PL)
  Receive Date: 20211006
  Receipt Date: 20211122
  Transmission Date: 20220303
  Serious: Yes (Life-Threatening, Hospitalization, Other)
  Sender: FDA-Public Use
  Company Number: PL-BIOGEN-2021BI01055049

PATIENT
  Sex: Female

DRUGS (1)
  1. SPINRAZA [Suspect]
     Active Substance: NUSINERSEN
     Indication: Spinal muscular atrophy
     Route: 065

REACTIONS (6)
  - Syncope [Unknown]
  - Haemoglobin decreased [Unknown]
  - Meningitis aseptic [Unknown]
  - CSF protein increased [Unknown]
  - Blood disorder [Unknown]
  - Anaemia [Unknown]

NARRATIVE: CASE EVENT DATE: 20210921
